FAERS Safety Report 20201064 (Version 1)
Quarter: 2021Q4

REPORT INFORMATION
  Report Type: Spontaneous
  Country: CN (occurrence: CN)
  Receive Date: 20211217
  Receipt Date: 20211217
  Transmission Date: 20220303
  Serious: Yes (Hospitalization, Other)
  Sender: FDA-Public Use
  Company Number: CN-GE HEALTHCARE-2021CSU006422

PATIENT

DRUGS (3)
  1. OMNIPAQUE [Suspect]
     Active Substance: IOHEXOL
     Indication: Angiocardiogram
     Dosage: 50 ML, SINGLE
     Route: 013
     Dates: start: 20200829, end: 20200829
  2. OMNIPAQUE [Suspect]
     Active Substance: IOHEXOL
     Indication: Chest discomfort
  3. OMNIPAQUE [Suspect]
     Active Substance: IOHEXOL
     Indication: Dyspnoea

REACTIONS (3)
  - Dysphoria [Recovered/Resolved]
  - Deafness [Recovered/Resolved]
  - Blindness transient [Recovered/Resolved]

NARRATIVE: CASE EVENT DATE: 20200829
